FAERS Safety Report 23667591 (Version 2)
Quarter: 2024Q2

REPORT INFORMATION
  Report Type: Spontaneous
  Country: US (occurrence: US)
  Receive Date: 20240325
  Receipt Date: 20240415
  Transmission Date: 20240716
  Serious: Yes (Life-Threatening, Hospitalization)
  Sender: FDA-Public Use
  Company Number: US-TEVA-VS-3173588

PATIENT
  Age: 58 Year
  Sex: Female

DRUGS (2)
  1. METFORMIN [Suspect]
     Active Substance: METFORMIN HYDROCHLORIDE
     Indication: Diabetes mellitus
     Dosage: FOR THE PAST ONE WEEK
     Route: 065
  2. ENALAPRIL [Suspect]
     Active Substance: ENALAPRIL
     Indication: Hypertension
     Dosage: FOR THE PAST ONE WEEK
     Route: 065

REACTIONS (7)
  - Lactic acidosis [Recovering/Resolving]
  - Metabolic encephalopathy [Recovering/Resolving]
  - Intestinal ischaemia [Recovering/Resolving]
  - Atrial fibrillation [Recovering/Resolving]
  - Toxicity to various agents [Recovering/Resolving]
  - Hyperkalaemia [Recovering/Resolving]
  - Prescription drug used without a prescription [Unknown]
